FAERS Safety Report 4519675-1 (Version None)
Quarter: 2004Q4

REPORT INFORMATION
  Report Type: 
  Country: None (occurrence: None)
  Receive Date: 20041206
  Receipt Date: 20040928
  Transmission Date: 20050328
  Serious: Yes (Other)
  Sender: FDA-Public Use
  Company Number: PHEH2004US10482

PATIENT
  Age: 64 Year
  Sex: Female
  Weight: 74 kg

DRUGS (6)
  1. FOSAMAX [Concomitant]
  2. NASACORT [Concomitant]
  3. ALLEGRA [Concomitant]
  4. ADVAIR [Concomitant]
  5. PAXIL [Concomitant]
  6. ZELNORM [Suspect]
     Indication: IRRITABLE BOWEL SYNDROME
     Dosage: 6 MG, BID
     Route: 048
     Dates: start: 20030301

REACTIONS (2)
  - ABDOMINAL PAIN [None]
  - DIARRHOEA HAEMORRHAGIC [None]
